FAERS Safety Report 5773604-1 (Version None)
Quarter: 2008Q2

REPORT INFORMATION
  Report Type: 
  Country: None (occurrence: None)
  Receive Date: 20080601
  Receipt Date: 20080320
  Transmission Date: 20081010
  Serious: No
  Sender: FDA-Public Use
  Company Number: US200803006199

PATIENT
  Age: 36 Year
  Sex: Female

DRUGS (1)
  1. BYETTA [Suspect]
     Dosage: SEE IMAGE
     Route: 058

REACTIONS (2)
  - FEELING ABNORMAL [None]
  - NAUSEA [None]
